FAERS Safety Report 9266628 (Version 5)
Quarter: 2014Q2

REPORT INFORMATION
  Report Type: Report from Study
  Country: FR (occurrence: FR)
  Receive Date: 20130502
  Receipt Date: 20140630
  Transmission Date: 20141212
  Serious: Yes (Hospitalization)
  Sender: FDA-Public Use
  Company Number: FR-BAYER-2013-052298

PATIENT
  Age: 61 Year
  Sex: Male
  Weight: 87.5 kg

DRUGS (11)
  1. REGORAFENIB [Suspect]
     Indication: COLORECTAL CANCER METASTATIC
     Dosage: 160 MG, TOTAL DAILY DOSE
     Route: 048
     Dates: start: 20130320, end: 20130329
  2. AMLOR [Concomitant]
     Indication: HYPERTENSION
     Dosage: 5 MG, QD
     Route: 048
     Dates: start: 20130322, end: 20130329
  3. AMLOR [Concomitant]
     Indication: HYPERTENSION
     Dosage: 10 MG, QD
     Route: 048
     Dates: start: 20130330
  4. COAPROVEL [Concomitant]
     Indication: HYPERTENSION
     Dosage: 150MG/12.5MG TWICE A DAY
     Route: 048
     Dates: start: 201304
  5. JANUVIA [Concomitant]
     Indication: TYPE 2 DIABETES MELLITUS
     Dosage: 100 MG, QD
     Route: 048
  6. LIPANTHYL [Concomitant]
     Indication: HYPERCHOLESTEROLAEMIA
     Dosage: 200 MG, QD
     Route: 048
  7. INEXIUM [Concomitant]
     Dosage: 20 MG, 2 TABLETS IN THE MORNING
     Dates: start: 201304
  8. TRIMEBUTINE [Concomitant]
     Dosage: 1 TABLET IN THE MORNING
  9. AVASTIN [Concomitant]
     Indication: COLON CANCER METASTATIC
     Dosage: UNK
     Dates: end: 201302
  10. NEBIVOLOL [Concomitant]
     Indication: HYPERTENSION
     Dosage: 5 MG, 1/2 TABLET EVERY DAY
     Route: 048
     Dates: start: 201304
  11. DOLIPRANE [Concomitant]
     Indication: MUSCULOSKELETAL CHEST PAIN
     Dosage: 500 MG, 2 CAPSULES EVERY 8 HOURS IF PAIN EPISODES
     Dates: start: 201304

REACTIONS (1)
  - Thrombotic microangiopathy [Recovered/Resolved]
